FAERS Safety Report 9439488 (Version 1)
Quarter: 2013Q3

REPORT INFORMATION
  Report Type: Spontaneous
  Country: US (occurrence: US)
  Receive Date: 20130805
  Receipt Date: 20130805
  Transmission Date: 20140515
  Serious: No
  Sender: FDA-Public Use
  Company Number: US-BIOGENIDEC-2013BI071155

PATIENT
  Sex: Female

DRUGS (1)
  1. TYSABRI [Suspect]
     Indication: MULTIPLE SCLEROSIS
     Route: 042
     Dates: start: 20130131

REACTIONS (7)
  - Arthropathy [Not Recovered/Not Resolved]
  - Incoherent [Not Recovered/Not Resolved]
  - Optic neuritis [Not Recovered/Not Resolved]
  - Medical device complication [Not Recovered/Not Resolved]
  - Infusion site extravasation [Not Recovered/Not Resolved]
  - Asthenia [Recovered/Resolved]
  - Uhthoff^s phenomenon [Not Recovered/Not Resolved]
